FAERS Safety Report 24433246 (Version 1)
Quarter: 2024Q4

REPORT INFORMATION
  Report Type: Report from Study
  Country: CN (occurrence: CN)
  Receive Date: 20241014
  Receipt Date: 20241014
  Transmission Date: 20250115
  Serious: Yes (Other)
  Sender: ALEXION PHARMACEUTICALS
  Company Number: CN-ASTRAZENECA-202409GLO005824CN

PATIENT

DRUGS (12)
  1. TICAGRELOR [Suspect]
     Active Substance: TICAGRELOR
     Indication: Drug therapy
     Dosage: 180 MILLIGRAM;LOADING DOSE
  2. TICAGRELOR [Suspect]
     Active Substance: TICAGRELOR
     Dosage: 180 MILLIGRAM;LOADING DOSE
  3. TICAGRELOR [Suspect]
     Active Substance: TICAGRELOR
     Dosage: 180 MILLIGRAM;LOADING DOSE
  4. TICAGRELOR [Suspect]
     Active Substance: TICAGRELOR
     Dosage: 180 MILLIGRAM;LOADING DOSE
  5. TICAGRELOR [Suspect]
     Active Substance: TICAGRELOR
     Dosage: 90 MILLIGRAM, BID
  6. TICAGRELOR [Suspect]
     Active Substance: TICAGRELOR
     Dosage: 90 MILLIGRAM, BID
  7. TICAGRELOR [Suspect]
     Active Substance: TICAGRELOR
     Dosage: 90 MILLIGRAM, BID
  8. TICAGRELOR [Suspect]
     Active Substance: TICAGRELOR
     Dosage: 90 MILLIGRAM, BID
  9. ASPIRIN [Suspect]
     Active Substance: ASPIRIN
     Indication: Drug therapy
     Dosage: 100 MILLIGRAM, QD
  10. ASPIRIN [Suspect]
     Active Substance: ASPIRIN
     Dosage: 100 MILLIGRAM, QD
  11. ASPIRIN [Suspect]
     Active Substance: ASPIRIN
     Dosage: 100 MILLIGRAM, QD
  12. ASPIRIN [Suspect]
     Active Substance: ASPIRIN
     Dosage: 100 MILLIGRAM, QD

REACTIONS (1)
  - Haemorrhage [Unknown]
